FAERS Safety Report 16252308 (Version 1)
Quarter: 2019Q2

REPORT INFORMATION
  Report Type: Spontaneous
  Country: AU (occurrence: AU)
  Receive Date: 20190429
  Receipt Date: 20190429
  Transmission Date: 20190711
  Serious: Yes (Hospitalization)
  Sender: FDA-Public Use
  Company Number: AU-TIME-CAP LABS, INC.-2066402

PATIENT
  Sex: Male

DRUGS (1)
  1. COMMON MOLECULE PARACETAMOL FROM AUSTRALIA MARKET [Suspect]
     Active Substance: ACETAMINOPHEN

REACTIONS (1)
  - Anaphylactic reaction [None]
